FAERS Safety Report 13342784 (Version 3)
Quarter: 2018Q2

REPORT INFORMATION
  Report Type: Spontaneous
  Country: US (occurrence: US)
  Receive Date: 20170316
  Receipt Date: 20180508
  Transmission Date: 20180711
  Serious: Yes (Hospitalization, Other)
  Sender: FDA-Public Use
  Company Number: US-SAOL THERAPEUTICS-0700638325

PATIENT
  Sex: Male
  Weight: 70.3 kg

DRUGS (22)
  1. SOMA [Suspect]
     Active Substance: CARISOPRODOL
  2. VITAMIN D [Suspect]
     Active Substance: CHOLECALCIFEROL
  3. TRAZODONE [Suspect]
     Active Substance: TRAZODONE HYDROCHLORIDE
  4. IBUPROFEN. [Suspect]
     Active Substance: IBUPROFEN
  5. VITAMIN B COMPLEX [Suspect]
     Active Substance: CYANOCOBALAMIN\DEXPANTHENOL\NIACINAMIDE\PYRIDOXINE HYDROCHLORIDE\RIBOFLAVIN 5^-PHOSPHATE SODIUM\THIAMINE HYDROCHLORIDE\VITAMIN B COMPLEX
  6. PRIALT [Suspect]
     Active Substance: ZICONOTIDE ACETATE
     Dosage: 2.060 ?G, \DAY
     Route: 037
  7. BACLOFEN. [Suspect]
     Active Substance: BACLOFEN
     Indication: PAIN
     Dosage: 32.62 ?G, \DAY
     Route: 037
  8. VITAMIN C [Suspect]
     Active Substance: ASCORBIC ACID
  9. FISH OIL [Concomitant]
     Active Substance: FISH OIL
  10. OMEGA 3 [Concomitant]
     Active Substance: OMEGA-3 FATTY ACIDS
  11. METHADONE [Concomitant]
     Active Substance: METHADONE HYDROCHLORIDE
  12. SIMVASTATIN. [Suspect]
     Active Substance: SIMVASTATIN
  13. ZOLOFT [Suspect]
     Active Substance: SERTRALINE HYDROCHLORIDE
  14. MULTIVITAMIN [Suspect]
     Active Substance: VITAMINS
  15. HYDROMORPHONE [Suspect]
     Active Substance: HYDROMORPHONE
     Dosage: 5.494 ?G, \DAY
     Route: 037
  16. GLUCOSAMINE CHONDR COMPLEX [Suspect]
     Active Substance: CHONDROITIN SULFATE (BOVINE)\GLUCOSAMINE HYDROCHLORIDE
  17. COMPOUNDED BACLOFEN [Suspect]
     Active Substance: BACLOFEN
     Indication: MUSCLE SPASMS
     Dosage: 52 ?G, \DAY
     Route: 037
     Dates: start: 2008
  18. COMPOUNDED BACLOFEN [Suspect]
     Active Substance: BACLOFEN
     Indication: POST LAMINECTOMY SYNDROME
  19. DILAUDID [Suspect]
     Active Substance: HYDROMORPHONE HYDROCHLORIDE
  20. BEE POLLEN [Suspect]
     Active Substance: BEE POLLEN
  21. TESTOSTERONE. [Suspect]
     Active Substance: TESTOSTERONE
     Dosage: 4 MG, \DAY
     Route: 062
  22. GABAPENTIN. [Concomitant]
     Active Substance: GABAPENTIN

REACTIONS (4)
  - Diarrhoea [Unknown]
  - Off label use [Unknown]
  - Feeling abnormal [Recovered/Resolved]
  - Drug withdrawal syndrome [Recovered/Resolved]
